FAERS Safety Report 15789061 (Version 2)
Quarter: 2019Q1

REPORT INFORMATION
  Report Type: Spontaneous
  Country: US (occurrence: US)
  Receive Date: 20190104
  Receipt Date: 20190304
  Transmission Date: 20190417
  Serious: No
  Sender: FDA-Public Use
  Company Number: US-PFIZER INC-2019001268

PATIENT
  Age: 66 Year
  Sex: Female

DRUGS (1)
  1. XELJANZ XR [Suspect]
     Active Substance: TOFACITINIB CITRATE
     Dosage: 11 MG, DAILY (Q DAY)
     Route: 048

REACTIONS (8)
  - Gait disturbance [Recovering/Resolving]
  - Swelling [Recovering/Resolving]
  - Product dose omission [Unknown]
  - Oedema peripheral [Recovering/Resolving]
  - Bone pain [Unknown]
  - Feeling abnormal [Recovering/Resolving]
  - Arthralgia [Unknown]
  - Peripheral swelling [Recovering/Resolving]
